FAERS Safety Report 4511204-1 (Version None)
Quarter: 2004Q4

REPORT INFORMATION
  Report Type: 
  Country: None (occurrence: None)
  Receive Date: 20041122
  Receipt Date: 20041122
  Transmission Date: 20050328
  Serious: Yes (Hospitalization, Disabling)
  Sender: FDA-Public Use
  Company Number: None

PATIENT
  Sex: Female
  Weight: 63.5036 kg

DRUGS (2)
  1. EFFEXOR XR [Suspect]
     Indication: ANXIETY
     Dosage: 75MG  DAILY ORAL
     Route: 048
     Dates: start: 20010105, end: 20041120
  2. EFFEXOR XR [Suspect]
     Indication: DEPRESSION
     Dosage: 75MG  DAILY ORAL
     Route: 048
     Dates: start: 20010105, end: 20041120

REACTIONS (8)
  - ACTIVITIES OF DAILY LIVING IMPAIRED [None]
  - ANGER [None]
  - DEPRESSION [None]
  - DYSKINESIA [None]
  - IMPAIRED DRIVING ABILITY [None]
  - PALPITATIONS [None]
  - PARAESTHESIA [None]
  - SENSORY DISTURBANCE [None]
